FAERS Safety Report 12386133 (Version 1)
Quarter: 2016Q2

REPORT INFORMATION
  Report Type: Report from Study
  Country: US (occurrence: US)
  Receive Date: 20160519
  Receipt Date: 20160519
  Transmission Date: 20160815
  Serious: Yes (Other)
  Sender: FDA-Public Use
  Company Number: US-EISAI MEDICAL RESEARCH-EC-2016-015708

PATIENT
  Age: 32 Year
  Sex: Female
  Weight: 65.6 kg

DRUGS (11)
  1. PEMBROLIZUMAB. [Suspect]
     Active Substance: PEMBROLIZUMAB
     Indication: TRIPLE NEGATIVE BREAST CANCER
     Route: 041
     Dates: start: 20160208
  2. XANAX [Concomitant]
     Active Substance: ALPRAZOLAM
  3. TYLENOL [Concomitant]
     Active Substance: ACETAMINOPHEN
  4. ERIBULIN [Suspect]
     Active Substance: ERIBULIN
     Indication: TRIPLE NEGATIVE BREAST CANCER
     Route: 041
     Dates: start: 20160208
  5. VALIUM [Concomitant]
     Active Substance: DIAZEPAM
  6. ACETAMINOPHEN\HYDROCODONE BITARTRATE [Concomitant]
     Active Substance: ACETAMINOPHEN\HYDROCODONE BITARTRATE
  7. EPINEPHRINE. [Concomitant]
     Active Substance: EPINEPHRINE
  8. ZOFRAN [Concomitant]
     Active Substance: ONDANSETRON HYDROCHLORIDE
  9. LOVENOX [Concomitant]
     Active Substance: ENOXAPARIN SODIUM
  10. DECADRON [Concomitant]
     Active Substance: DEXAMETHASONE
  11. OXYCODONE [Concomitant]
     Active Substance: OXYCODONE

REACTIONS (1)
  - Infusion related reaction [Recovered/Resolved]

NARRATIVE: CASE EVENT DATE: 20160329
